FAERS Safety Report 7816288-0 (Version None)
Quarter: 2011Q4

REPORT INFORMATION
  Report Type: 
  Country: None (occurrence: None)
  Receive Date: 20111016
  Receipt Date: 20110922
  Transmission Date: 20120403
  Serious: Yes (Hospitalization, Other)
  Sender: FDA-Public Use
  Company Number: BR-ROCHE-612959

PATIENT
  Sex: Male
  Weight: 79.5 kg

DRUGS (7)
  1. PEG-INTERFERON ALFA 2A [Suspect]
     Route: 058
  2. SULFAMETHOXAZOLE AND TRIMETHOPRIM [Suspect]
     Indication: PRODUCT USED FOR UNKNOWN INDICATION
     Route: 065
  3. CLONAZEPAM [Suspect]
     Indication: INSOMNIA
     Route: 048
  4. CLONAZEPAM [Suspect]
     Indication: CONVULSION
     Dosage: DOSAGE LOWERED
     Route: 048
  5. PEG-INTERFERON ALFA 2A [Suspect]
     Route: 058
  6. PEG-INTERFERON ALFA 2A [Suspect]
     Indication: HEPATITIS C
     Dosage: 360 UG EVERY THURSDAYS
     Route: 058
  7. COPEGUS [Suspect]
     Indication: HEPATITIS C
     Dosage: FREQUENCY: 6 UNITS/DAY (2 UNITS EACH IN THE MORNING, AFTERNOON AND NIGHT)
     Route: 048
     Dates: start: 20070919, end: 20081001

REACTIONS (18)
  - PNEUMONIA [None]
  - LEUKOPENIA [None]
  - CALCINOSIS [None]
  - DEPENDENCE [None]
  - HEPATIC PAIN [None]
  - CONVULSION [None]
  - BLOOD URINE PRESENT [None]
  - BLOOD CHOLESTEROL INCREASED [None]
  - ASPARTATE AMINOTRANSFERASE INCREASED [None]
  - WEIGHT DECREASED [None]
  - TACHYCARDIA [None]
  - HEPATITIS C [None]
  - MYOPATHY [None]
  - TOXICITY TO VARIOUS AGENTS [None]
  - DIZZINESS [None]
  - THROMBOCYTOPENIA [None]
  - IMMUNODEFICIENCY [None]
  - SKIN EROSION [None]
